FAERS Safety Report 21558603 (Version 7)
Quarter: 2023Q1

REPORT INFORMATION
  Report Type: Spontaneous
  Country: JP (occurrence: JP)
  Receive Date: 20221107
  Receipt Date: 20230113
  Transmission Date: 20230418
  Serious: Yes (Hospitalization, Disabling, Other)
  Sender: FDA-Public Use
  Company Number: JP-ONO-2022JP029680

PATIENT
  Age: 69 Year
  Sex: Female

DRUGS (2)
  1. OPDIVO [Suspect]
     Active Substance: NIVOLUMAB
     Indication: Metastatic renal cell carcinoma
     Dosage: TOTAL NUMBER OF DOSES: 3 TIMES
     Route: 041
     Dates: start: 20211122, end: 20220105
  2. YERVOY [Suspect]
     Active Substance: IPILIMUMAB
     Indication: Metastatic renal cell carcinoma
     Dosage: TOTAL NUMBER OF DOSES: 3 TIMES
     Route: 041
     Dates: start: 20211122, end: 20220105

REACTIONS (4)
  - Limbic encephalitis [Recovering/Resolving]
  - Hyponatraemia [Recovering/Resolving]
  - Immune-mediated hepatic disorder [Recovering/Resolving]
  - Hypokalaemia [Recovering/Resolving]

NARRATIVE: CASE EVENT DATE: 20220117
